FAERS Safety Report 22297818 (Version 1)
Quarter: 2023Q2

REPORT INFORMATION
  Report Type: Spontaneous
  Country: US (occurrence: US)
  Receive Date: 20230509
  Receipt Date: 20230509
  Transmission Date: 20230721
  Serious: No
  Sender: FDA-Public Use
  Company Number: US-APOTEX-2022AP012191

PATIENT
  Sex: Female

DRUGS (2)
  1. IPRATROPIUM BROMIDE [Suspect]
     Active Substance: IPRATROPIUM BROMIDE\IPRATROPIUM BROMIDE ANHYDROUS
     Indication: Hypersensitivity
     Dosage: 4 DOSAGE FORM, BID (IN THE MORNING AND AT NIGHT)
     Route: 045
     Dates: start: 2022
  2. IPRATROPIUM BROMIDE [Suspect]
     Active Substance: IPRATROPIUM BROMIDE\IPRATROPIUM BROMIDE ANHYDROUS
     Dosage: 4 DOSAGE FORM, TID (AS REQUIRED)
     Route: 045
     Dates: start: 2022

REACTIONS (5)
  - Incorrect dose administered [Unknown]
  - Product delivery mechanism issue [Unknown]
  - Product physical issue [Unknown]
  - Product outer packaging issue [Unknown]
  - Nasal congestion [Recovered/Resolved]

NARRATIVE: CASE EVENT DATE: 20220101
